FAERS Safety Report 21040003 (Version 1)
Quarter: 2022Q3

REPORT INFORMATION
  Report Type: Spontaneous
  Country: ET (occurrence: ET)
  Receive Date: 20220704
  Receipt Date: 20220704
  Transmission Date: 20221027
  Serious: Yes (Death, Other)
  Sender: FDA-Public Use
  Company Number: ET-NOVARTISPH-NVSC2022ET151592

PATIENT
  Sex: Female

DRUGS (1)
  1. GLIVEC [Suspect]
     Active Substance: IMATINIB MESYLATE
     Indication: Acute lymphocytic leukaemia
     Dosage: 600 MG (6 X 100MG TABLETS)
     Route: 065

REACTIONS (2)
  - Sepsis [Fatal]
  - Acute lymphocytic leukaemia recurrent [Unknown]
